FAERS Safety Report 15049836 (Version 1)
Quarter: 2018Q2

REPORT INFORMATION
  Report Type: Spontaneous
  Country: US (occurrence: US)
  Receive Date: 20180622
  Receipt Date: 20180622
  Transmission Date: 20180711
  Serious: No
  Sender: FDA-Public Use
  Company Number: US-MYLANLABS-2018M1035859

PATIENT
  Sex: Female
  Weight: 58 kg

DRUGS (1)
  1. ESTRADIOL TRANSDERMAL SYSTEM [Suspect]
     Active Substance: ESTRADIOL
     Indication: CONTRACEPTION
     Dosage: 0.075 MG, QD
     Route: 062

REACTIONS (3)
  - Hormone level abnormal [Unknown]
  - Wrong technique in product usage process [Recovered/Resolved]
  - Product adhesion issue [Unknown]
